FAERS Safety Report 13898276 (Version 5)
Quarter: 2019Q1

REPORT INFORMATION
  Report Type: Report from Study
  Country: US (occurrence: US)
  Receive Date: 20170823
  Receipt Date: 20190107
  Transmission Date: 20190417
  Serious: Yes (Other)
  Sender: FDA-Public Use
  Company Number: PHEH2017US026916

PATIENT
  Age: 37 Year
  Sex: Male
  Weight: 96.16 kg

DRUGS (2)
  1. GILENYA [Suspect]
     Active Substance: FINGOLIMOD HYDROCHLORIDE
     Dosage: 0.5 MG, QD
     Route: 048
     Dates: start: 20170309
  2. GILENYA [Suspect]
     Active Substance: FINGOLIMOD HYDROCHLORIDE
     Indication: MULTIPLE SCLEROSIS
     Dosage: 0.5 MG, QD
     Route: 048
     Dates: start: 20170801

REACTIONS (12)
  - Nasopharyngitis [Unknown]
  - Optic neuritis [Unknown]
  - Sinus pain [Unknown]
  - Pain in extremity [Unknown]
  - Arthralgia [Unknown]
  - Back pain [Unknown]
  - Visual impairment [Unknown]
  - Extrasystoles [Unknown]
  - Neck pain [Unknown]
  - Productive cough [Unknown]
  - Eye pain [Unknown]
  - Oropharyngeal pain [Unknown]

NARRATIVE: CASE EVENT DATE: 20170812
